FAERS Safety Report 7284293-1 (Version None)
Quarter: 2011Q1

REPORT INFORMATION
  Report Type: 
  Country: None (occurrence: None)
  Receive Date: 20110209
  Receipt Date: 20110201
  Transmission Date: 20110831
  Serious: Yes (Other)
  Sender: FDA-Public Use
  Company Number: DE-BAXTER-2011BH002687

PATIENT
  Sex: Male

DRUGS (1)
  1. FEIBA VH [Suspect]
     Indication: PROPHYLAXIS
     Route: 065

REACTIONS (1)
  - FACTOR VIII INHIBITION [None]
